FAERS Safety Report 7358293-7 (Version None)
Quarter: 2011Q1

REPORT INFORMATION
  Report Type: 
  Country: None (occurrence: None)
  Receive Date: 20110317
  Receipt Date: 20110310
  Transmission Date: 20110831
  Serious: Yes (Other)
  Sender: FDA-Public Use
  Company Number: JP-ROCHE-765427

PATIENT
  Sex: Female

DRUGS (2)
  1. OSELTAMIVIR [Suspect]
     Indication: INFLUENZA
     Route: 048
     Dates: start: 20091117, end: 20091119
  2. BROCIN [Concomitant]
     Dates: start: 20091117, end: 20091120

REACTIONS (2)
  - ABORTION SPONTANEOUS [None]
  - DRUG EXPOSURE DURING PREGNANCY [None]
